FAERS Safety Report 14692829 (Version 6)
Quarter: 2021Q3

REPORT INFORMATION
  Report Type: Report from Study
  Country: RU (occurrence: RU)
  Receive Date: 20180329
  Receipt Date: 20210913
  Transmission Date: 20211014
  Serious: Yes (Death)
  Sender: FDA-Public Use
  Company Number: RU-CLOVIS ONCOLOGY-CLO-2018-000299

PATIENT

DRUGS (6)
  1. DEXAMETHASONE. [Concomitant]
     Active Substance: DEXAMETHASONE
     Indication: ASTHENIA
     Dosage: UNK
     Dates: start: 20180228, end: 20180228
  2. MAGNESIUM CHLORIDE;POTASSIUM;SODIUM CHLORIDE [Concomitant]
     Indication: ASTHENIA
     Dosage: UNK
     Dates: start: 20180228, end: 20180228
  3. RUCAPARIB [Suspect]
     Active Substance: RUCAPARIB
     Indication: OVARIAN CANCER
     Dosage: 600 MG, BID
     Route: 048
     Dates: start: 20180104
  4. RINGER^S SOLUTION                  /03112001/ [Concomitant]
     Active Substance: CALCIUM CHLORIDE\POTASSIUM CHLORIDE
     Indication: ASTHENIA
     Dosage: UNK
     Dates: start: 20180228, end: 20180228
  5. FAMOTIDINE. [Concomitant]
     Active Substance: FAMOTIDINE
     Indication: ASTHENIA
     Dosage: UNK
     Dates: start: 20180228, end: 20180228
  6. RUCAPARIB [Suspect]
     Active Substance: RUCAPARIB
     Dosage: 500 MG, UNK
     Route: 048
     Dates: start: 20180201, end: 20180228

REACTIONS (1)
  - Death [Fatal]

NARRATIVE: CASE EVENT DATE: 20180310
